FAERS Safety Report 8444733-9 (Version None)
Quarter: 2012Q2

REPORT INFORMATION
  Report Type: 
  Country: None (occurrence: None)
  Receive Date: 20120618
  Receipt Date: 20120611
  Transmission Date: 20120825
  Serious: Yes (Hospitalization)
  Sender: FDA-Public Use
  Company Number: US-CELGENEUS-163-21880-12052966

PATIENT
  Sex: Male

DRUGS (6)
  1. FISH OIL [Concomitant]
     Route: 065
  2. MULTI-VITAMINS [Concomitant]
     Route: 065
  3. REVLIMID [Suspect]
     Indication: MULTIPLE MYELOMA
     Dosage: 15 MILLIGRAM
     Route: 048
     Dates: start: 20120428
  4. CALCIUM WITH VITAMIN D [Concomitant]
     Route: 065
  5. COENZYME Q10 [Concomitant]
     Route: 065
  6. ASPIRIN [Concomitant]
     Route: 065

REACTIONS (1)
  - SPINAL DISORDER [None]
